FAERS Safety Report 4881596-2 (Version None)
Quarter: 2005Q4

REPORT INFORMATION
  Report Type: 
  Country: None (occurrence: None)
  Receive Date: 20051209
  Receipt Date: 20050823
  Transmission Date: 20060501
  Serious: Yes (Death)
  Sender: FDA-Public Use
  Company Number: USA-2005-0021087

PATIENT
  Age: 51 Year
  Sex: Male

DRUGS (4)
  1. OXYCONTIN [Suspect]
     Dosage: 80 MG
  2. CHLORDIAZEPOXIDE [Suspect]
  3. DIAZEPAM [Suspect]
  4. TEMAZEPAM [Suspect]

REACTIONS (1)
  - ACCIDENTAL OVERDOSE [None]
